FAERS Safety Report 8428912-2 (Version None)
Quarter: 2012Q2

REPORT INFORMATION
  Report Type: 
  Country: None (occurrence: None)
  Receive Date: 20120612
  Receipt Date: 20120604
  Transmission Date: 20120825
  Serious: Yes (Other)
  Sender: FDA-Public Use
  Company Number: JP-BAYER-2012-047101

PATIENT
  Age: 62 Year
  Sex: Female
  Weight: 55 kg

DRUGS (3)
  1. AVELOX [Suspect]
     Indication: UPPER RESPIRATORY TRACT INFLAMMATION
     Dosage: 400 MG, QD
     Route: 048
     Dates: start: 20120509, end: 20120512
  2. ACETAMINOPHEN [Concomitant]
     Indication: LARYNGITIS
     Dosage: DAILY DOSE 900 MG
     Dates: start: 20120509, end: 20120511
  3. MUCODYNE [Concomitant]
     Indication: LARYNGITIS
     Dosage: DAILY DOSE 750 MG
     Route: 048
     Dates: start: 20120509, end: 20120511

REACTIONS (2)
  - RESPIRATORY TRACT OEDEMA [None]
  - DYSPNOEA [None]
